FAERS Safety Report 21364063 (Version 3)
Quarter: 2022Q4

REPORT INFORMATION
  Report Type: Spontaneous
  Country: US (occurrence: US)
  Receive Date: 20220922
  Receipt Date: 20221017
  Transmission Date: 20230113
  Serious: Yes (Hospitalization, Other)
  Sender: FDA-Public Use
  Company Number: US-GLAXOSMITHKLINE-US2022133619

PATIENT

DRUGS (4)
  1. ADVAIR DISKUS [Suspect]
     Active Substance: FLUTICASONE PROPIONATE\SALMETEROL XINAFOATE
     Indication: Chronic obstructive pulmonary disease
     Dosage: UNK, BID, INHA 250/50 PWD
     Route: 055
     Dates: start: 2009
  2. SPIRIVA [Concomitant]
     Active Substance: TIOTROPIUM BROMIDE MONOHYDRATE
     Indication: Chronic obstructive pulmonary disease
     Dosage: 18 MG, QD (CAPSULE  1X DAILY)
     Dates: start: 200901
  3. CEQUA [Concomitant]
     Active Substance: CYCLOSPORINE
     Indication: Dry eye
     Dosage: QD (1 X DAILY)
  4. LATANOPROST [Concomitant]
     Active Substance: LATANOPROST
     Indication: Dry eye
     Dosage: QD (1XS DAY)

REACTIONS (3)
  - Cardiovascular disorder [Recovering/Resolving]
  - Arterial occlusive disease [Not Recovered/Not Resolved]
  - Venous occlusion [Recovering/Resolving]

NARRATIVE: CASE EVENT DATE: 20220101
